FAERS Safety Report 19822956 (Version 1)
Quarter: 2021Q3

REPORT INFORMATION
  Report Type: Spontaneous
  Country: GB (occurrence: GB)
  Receive Date: 20210913
  Receipt Date: 20210913
  Transmission Date: 20211014
  Serious: Yes (Hospitalization)
  Sender: FDA-Public Use
  Company Number: GB-MYLANLABS-2021M1060732

PATIENT
  Sex: Female

DRUGS (2)
  1. L?GLUTAMINE                        /00503401/ [Interacting]
     Active Substance: GLUTAMINE
     Indication: PRODUCT USED FOR UNKNOWN INDICATION
  2. LAMOTRIGINE MYLAN 25 MG TABLETS [Suspect]
     Active Substance: LAMOTRIGINE
     Indication: DISSOCIATION
     Dosage: 25 MICROGRAM, 1 DOSE OF 25 MG IN AUGUST
     Dates: start: 202108

REACTIONS (6)
  - Drug ineffective [Unknown]
  - Drug interaction [Unknown]
  - Disturbance in attention [Unknown]
  - Hospitalisation [Unknown]
  - Off label use [Unknown]
  - Crying [Unknown]
